FAERS Safety Report 6488573-9 (Version None)
Quarter: 2009Q4

REPORT INFORMATION
  Report Type: 
  Country: None (occurrence: None)
  Receive Date: 20091207
  Receipt Date: 20091123
  Transmission Date: 20100525
  Serious: Yes (Other)
  Sender: FDA-Public Use
  Company Number: UKP09000197

PATIENT
  Age: 65 Year
  Sex: Female

DRUGS (3)
  1. ACTONEL [Suspect]
     Indication: BLOOD CHOLESTEROL ABNORMAL
     Dosage: 35 MG, 1/WEEK, ORAL
     Route: 048
     Dates: start: 20011101, end: 20070901
  2. LIPITOR [Suspect]
     Indication: BLOOD CHOLESTEROL ABNORMAL
     Dosage: 10 MG, ORAL
     Route: 048
     Dates: start: 20050701, end: 20070701
  3. CALCICHEW /00108001/ (CALCIUM CARBONATE) [Concomitant]

REACTIONS (1)
  - RHEUMATOID ARTHRITIS [None]
